FAERS Safety Report 7475408-0 (Version None)
Quarter: 2011Q2

REPORT INFORMATION
  Report Type: 
  Country: None (occurrence: None)
  Receive Date: 20110512
  Receipt Date: 20110506
  Transmission Date: 20111010
  Serious: Yes (Other)
  Sender: FDA-Public Use
  Company Number: US-AMGEN-USASP2011015337

PATIENT
  Age: 44 Year
  Sex: Male
  Weight: 107.48 kg

DRUGS (4)
  1. ENBREL [Suspect]
     Indication: RHEUMATOID ARTHRITIS
     Dosage: 50 MG, QWK
     Route: 058
     Dates: start: 20100816, end: 20110207
  2. FOLIC ACID [Concomitant]
     Dosage: 1 MG, QD
  3. ENBREL [Suspect]
     Indication: UVEITIS
  4. METHOTREXATE [Concomitant]
     Dosage: 2.5 MG, QWK

REACTIONS (1)
  - MYELITIS [None]
